FAERS Safety Report 4896024-0 (Version None)
Quarter: 2005Q4

REPORT INFORMATION
  Report Type: 
  Country: None (occurrence: None)
  Receive Date: 20051228
  Receipt Date: 20050720
  Transmission Date: 20060501
  Serious: Yes (Life-Threatening, Hospitalization)
  Sender: FDA-Public Use
  Company Number: US_990420420

PATIENT
  Age: 56 Year
  Sex: Female
  Weight: 59 kg

DRUGS (5)
  1. HUMULIN N [Suspect]
     Indication: DIABETES MELLITUS
     Dosage: 28  U/DAY
     Dates: start: 19940101, end: 19950101
  2. SYNTHROID [Concomitant]
  3. PREMARIN [Concomitant]
  4. HUMALOG [Concomitant]
  5. ILETIN II PORK NPH (ISOPHANE INSULIN) [Concomitant]

REACTIONS (10)
  - DRUG HYPERSENSITIVITY [None]
  - DYSPNOEA [None]
  - ERYTHEMA [None]
  - INFLUENZA LIKE ILLNESS [None]
  - JOINT SWELLING [None]
  - RASH [None]
  - RASH PRURITIC [None]
  - SWELLING [None]
  - URTICARIA [None]
  - VERTIGO [None]
